FAERS Safety Report 20245497 (Version 1)
Quarter: 2021Q4

REPORT INFORMATION
  Report Type: Report from Study
  Country: US (occurrence: US)
  Receive Date: 20211229
  Receipt Date: 20211229
  Transmission Date: 20220303
  Serious: Yes (Hospitalization)
  Sender: FDA-Public Use
  Company Number: US-NOVARTISTESTPH-NVSC2021US292718

PATIENT
  Sex: Female

DRUGS (1)
  1. TABRECTA [Suspect]
     Active Substance: CAPMATINIB
     Indication: Lung carcinoma cell type unspecified stage 0
     Dosage: 400 MG, BID
     Route: 048
     Dates: end: 202111

REACTIONS (4)
  - Pneumonia [Unknown]
  - Arterial occlusive disease [Unknown]
  - Nausea [Unknown]
  - Weight decreased [Unknown]
